FAERS Safety Report 6341941-8 (Version None)
Quarter: 2009Q3

REPORT INFORMATION
  Report Type: 
  Country: None (occurrence: None)
  Receive Date: 20090904
  Receipt Date: 20090825
  Transmission Date: 20100115
  Serious: Yes (Hospitalization)
  Sender: FDA-Public Use
  Company Number: PHHY2009FR36355

PATIENT
  Sex: Female

DRUGS (1)
  1. LAMISIL [Suspect]
     Indication: FUNGAL INFECTION
     Dosage: 250 MG, QD
     Dates: start: 20080820, end: 20081014

REACTIONS (5)
  - ABDOMINAL PAIN UPPER [None]
  - BILIARY COLIC [None]
  - BODY TEMPERATURE INCREASED [None]
  - HEPATIC FUNCTION ABNORMAL [None]
  - INFLAMMATION [None]
